FAERS Safety Report 19268653 (Version 1)
Quarter: 2021Q2

REPORT INFORMATION
  Report Type: Spontaneous
  Country: FR (occurrence: FR)
  Receive Date: 20210518
  Receipt Date: 20210518
  Transmission Date: 20210717
  Serious: Yes (Hospitalization)
  Sender: FDA-Public Use
  Company Number: FR-TEVA-2021-FR-1911168

PATIENT
  Age: 73 Year
  Sex: Male

DRUGS (7)
  1. AMOXICILLINE [Suspect]
     Active Substance: AMOXICILLIN
     Indication: BRONCHITIS
     Route: 048
     Dates: start: 20190205, end: 20190213
  2. CRESTOR [Concomitant]
     Active Substance: ROSUVASTATIN CALCIUM
  3. LANTUS [Concomitant]
     Active Substance: INSULIN GLARGINE
  4. CORVASAL [Concomitant]
  5. APROVEL [Concomitant]
     Active Substance: IRBESARTAN
  6. LASILIX [Concomitant]
     Active Substance: FUROSEMIDE
  7. ISOPTINE [Concomitant]
     Active Substance: VERAPAMIL HYDROCHLORIDE

REACTIONS (2)
  - Chest pain [Recovered/Resolved]
  - Rash pruritic [Recovering/Resolving]

NARRATIVE: CASE EVENT DATE: 20190210
